FAERS Safety Report 4703288-2 (Version None)
Quarter: 2005Q2

REPORT INFORMATION
  Report Type: 
  Country: None (occurrence: None)
  Receive Date: 20050629
  Receipt Date: 20050321
  Transmission Date: 20051028
  Serious: Yes (Hospitalization, Other)
  Sender: FDA-Public Use
  Company Number: US-MERCK-0503USA03957

PATIENT
  Age: 80 Year
  Sex: Male

DRUGS (4)
  1. VIOXX [Suspect]
     Indication: ARTHRITIS
     Route: 048
     Dates: start: 19990101, end: 20040930
  2. PLAVIX [Concomitant]
     Route: 065
  3. IMDUR [Concomitant]
     Route: 065
  4. TOPROL-XL [Concomitant]
     Route: 065

REACTIONS (7)
  - ADVERSE EVENT [None]
  - CEREBROVASCULAR ACCIDENT [None]
  - CHEST PAIN [None]
  - MYOCARDIAL INFARCTION [None]
  - OEDEMA PERIPHERAL [None]
  - RENAL FAILURE [None]
  - THROMBOSIS [None]
